FAERS Safety Report 7833919-X (Version None)
Quarter: 2011Q4

REPORT INFORMATION
  Report Type: 
  Country: None (occurrence: None)
  Receive Date: 20111024
  Receipt Date: 20111011
  Transmission Date: 20120403
  Serious: Yes (Death)
  Sender: FDA-Public Use
  Company Number: FR-ROCHE-1003982

PATIENT
  Age: 61 Year
  Sex: Male

DRUGS (12)
  1. RAMIPRIL [Concomitant]
  2. FORLAX (AUSTRIA) [Concomitant]
  3. ROCEPHIN [Suspect]
     Indication: LUNG INFECTION
     Route: 042
  4. AMITRIPTYLINE HCL [Concomitant]
  5. AMLODIPINE BESYLATE [Concomitant]
  6. MORPHINE [Concomitant]
  7. VALIUM [Concomitant]
  8. OMEPRAZOLE [Concomitant]
  9. BISOPROLOL FUMARATE [Concomitant]
  10. ACETAMINOPHEN [Concomitant]
  11. LANTUS [Concomitant]
  12. PLAVIX [Concomitant]

REACTIONS (3)
  - NO ADVERSE EVENT [None]
  - MEDICATION ERROR [None]
  - LUNG NEOPLASM MALIGNANT [None]
